FAERS Safety Report 18272611 (Version 2)
Quarter: 2020Q4

REPORT INFORMATION
  Report Type: Report from Study
  Country: US (occurrence: US)
  Receive Date: 20200916
  Receipt Date: 20201005
  Transmission Date: 20210113
  Serious: Yes (Life-Threatening, Hospitalization)
  Sender: FDA-Public Use
  Company Number: US-ENDO PHARMACEUTICALS INC-2020-005941

PATIENT
  Age: 17 Year
  Sex: Male
  Weight: 87.6 kg

DRUGS (14)
  1. INCB018424 [Suspect]
     Active Substance: RUXOLITINIB
     Indication: ACUTE LYMPHOCYTIC LEUKAEMIA
     Dosage: 100 MG TWICE A DAY FOR 14 DAYS (ON/OFF)
     Route: 048
     Dates: start: 20191015
  2. VINCRISTINE [Suspect]
     Active Substance: VINCRISTINE
     Indication: GENE MUTATION
  3. DEXAMETHASONE. [Suspect]
     Active Substance: DEXAMETHASONE
     Indication: ACUTE LYMPHOCYTIC LEUKAEMIA
     Dosage: 6 MG EVERY 8 HOURS
     Route: 042
     Dates: start: 20200810, end: 20200818
  4. METHOTREXATE SODIUM. [Suspect]
     Active Substance: METHOTREXATE SODIUM
     Indication: ACUTE LYMPHOCYTIC LEUKAEMIA
     Dosage: UNK UNKNOWN, UNKNOWN
     Route: 048
  5. METHOTREXATE SODIUM. [Suspect]
     Active Substance: METHOTREXATE SODIUM
     Indication: GENE MUTATION
  6. INCB018424 [Suspect]
     Active Substance: RUXOLITINIB
     Indication: GENE MUTATION
  7. MERCAPTOPURINE. [Suspect]
     Active Substance: MERCAPTOPURINE
     Indication: ACUTE LYMPHOCYTIC LEUKAEMIA
     Dosage: 50 MG EVERY NIGHT X3 (MONDAY-FRIDAY); X3.5 (SATURDAY-SUNDAY)
     Route: 048
     Dates: start: 20191015, end: 20200810
  8. PREDNISONE. [Suspect]
     Active Substance: PREDNISONE
     Indication: GENE MUTATION
  9. METHOTREXATE. [Concomitant]
     Active Substance: METHOTREXATE
     Indication: ACUTE LYMPHOCYTIC LEUKAEMIA
     Dosage: 15 MG X1 (D1, 29)
     Route: 037
     Dates: start: 20191014
  10. DEXAMETHASONE. [Suspect]
     Active Substance: DEXAMETHASONE
     Indication: GENE MUTATION
     Dosage: 6 MG, OD
     Route: 048
     Dates: start: 20200819, end: 20200819
  11. PREDNISONE. [Suspect]
     Active Substance: PREDNISONE
     Indication: ACUTE LYMPHOCYTIC LEUKAEMIA
     Dosage: 20 MG, BID (FOR 5 DAYS)
     Route: 048
     Dates: start: 20200727
  12. METHOTREXATE. [Concomitant]
     Active Substance: METHOTREXATE
     Indication: GENE MUTATION
  13. VINCRISTINE [Suspect]
     Active Substance: VINCRISTINE
     Indication: ACUTE LYMPHOCYTIC LEUKAEMIA
     Dosage: 2 MG EVERY 29 DAYS
     Route: 042
     Dates: start: 20191028
  14. MERCAPTOPURINE. [Suspect]
     Active Substance: MERCAPTOPURINE
     Indication: GENE MUTATION

REACTIONS (3)
  - COVID-19 [Recovered/Resolved]
  - Condition aggravated [Recovered/Resolved]
  - Respiratory failure [Recovered/Resolved]

NARRATIVE: CASE EVENT DATE: 20200810
